FAERS Safety Report 9008370 (Version 1)
Quarter: 2013Q1

REPORT INFORMATION
  Report Type: Spontaneous
  Country: US (occurrence: US)
  Receive Date: 20130111
  Receipt Date: 20130111
  Transmission Date: 20140127
  Serious: Yes (Other)
  Sender: FDA-Public Use
  Company Number: US-ELI_LILLY_AND_COMPANY-US201301002377

PATIENT
  Age: 55 Year
  Sex: Female

DRUGS (3)
  1. HUMULIN REGULAR [Suspect]
     Dosage: 10 U, UNK
  2. LANTUS [Concomitant]
     Dosage: 15 U, QD
     Route: 058
     Dates: start: 201211
  3. LANTUS [Concomitant]
     Dosage: 32 U, QD
     Route: 058

REACTIONS (4)
  - Eye haemorrhage [Unknown]
  - Diabetic retinopathy [Unknown]
  - Visual impairment [Unknown]
  - Weight increased [Unknown]
